FAERS Safety Report 21829563 (Version 2)
Quarter: 2023Q1

REPORT INFORMATION
  Report Type: Spontaneous
  Country: US (occurrence: US)
  Receive Date: 20230106
  Receipt Date: 20230220
  Transmission Date: 20230418
  Serious: No
  Sender: FDA-Public Use
  Company Number: US-BRISTOL-MYERS SQUIBB COMPANY-2023-002287

PATIENT
  Age: 68 Year
  Sex: Female
  Weight: 61 kg

DRUGS (1)
  1. REVLIMID [Suspect]
     Active Substance: LENALIDOMIDE
     Indication: Plasma cell myeloma
     Dosage: FREQUENCY: DAILY FOR 14DAYS
     Route: 048
     Dates: end: 20230214

REACTIONS (4)
  - Full blood count decreased [Unknown]
  - Off label use [Unknown]
  - Rash macular [Not Recovered/Not Resolved]
  - Platelet count decreased [Unknown]
